FAERS Safety Report 4911807-6 (Version None)
Quarter: 2006Q1

REPORT INFORMATION
  Report Type: 
  Country: None (occurrence: None)
  Receive Date: 20060213
  Receipt Date: 20060213
  Transmission Date: 20060701
  Serious: Yes (Hospitalization)
  Sender: FDA-Public Use
  Company Number: None

PATIENT
  Age: 74 Year
  Sex: Female
  Weight: 58.9676 kg

DRUGS (2)
  1. TEQUIN [Suspect]
     Indication: LOBAR PNEUMONIA
     Dosage: 400 MG DAY 1 11/6/05  IVPB;  200 MG  11/7-11/9  IVPB
     Route: 042
     Dates: start: 20051106, end: 20051109
  2. AVANDIA [Suspect]
     Indication: DIABETES MELLITUS
     Dosage: 2 MG  DAILY  PO
     Route: 048
     Dates: start: 20051106, end: 20051109

REACTIONS (1)
  - HYPERGLYCAEMIA [None]
